FAERS Safety Report 15371387 (Version 1)
Quarter: 2018Q3

REPORT INFORMATION
  Report Type: Spontaneous
  Country: DE (occurrence: DE)
  Receive Date: 20180911
  Receipt Date: 20180911
  Transmission Date: 20181010
  Serious: Yes (Other)
  Sender: FDA-Public Use
  Company Number: PHHY2018DE091296

PATIENT
  Age: 66 Year
  Sex: Female

DRUGS (2)
  1. CLINDAMYCIN. [Suspect]
     Active Substance: CLINDAMYCIN
     Indication: ARTHRITIS INFECTIVE
     Route: 065
  2. PIPERACILLIN AND TAZOBACTAM [Suspect]
     Active Substance: PIPERACILLIN SODIUM\TAZOBACTAM SODIUM
     Indication: ARTHRITIS INFECTIVE
     Dosage: 13.5 G, UNK
     Route: 065

REACTIONS (2)
  - Pyrexia [Recovered/Resolved]
  - Chills [Recovered/Resolved]
